FAERS Safety Report 4327796-1 (Version None)
Quarter: 2004Q1

REPORT INFORMATION
  Report Type: 
  Country: None (occurrence: None)
  Receive Date: 20040325
  Receipt Date: 20040309
  Transmission Date: 20041129
  Serious: Yes (Hospitalization)
  Sender: FDA-Public Use
  Company Number: AU-JNJFOC-20040304325

PATIENT
  Age: 28 Year
  Sex: Male

DRUGS (2)
  1. TRAMADOL HCL [Suspect]
     Indication: BACK PAIN
     Dosage: 150 MG
  2. SEROQUEL [Suspect]
     Indication: SCHIZOPHRENIA
     Dosage: 1 G, ORAL
     Route: 048

REACTIONS (2)
  - GASTRIC ULCER [None]
  - OESOPHAGITIS [None]
